FAERS Safety Report 9826832 (Version 2)
Quarter: 2013Q4

REPORT INFORMATION
  Report Type: Spontaneous
  Country: US (occurrence: None)
  Receive Date: 20131223
  Receipt Date: 20131223
  Transmission Date: 20140711
  Serious: Yes (Other)
  Sender: FDA-Public Use
  Company Number: 221391LEO

PATIENT
  Age: 60 Year
  Sex: Female

DRUGS (1)
  1. PICATO [Suspect]
     Indication: ACTINIC KERATOSIS
     Dosage: ON THE LEFT CHEEK AND NOSE
     Dates: start: 20130418, end: 20130418

REACTIONS (7)
  - Application site burn [None]
  - Application site pain [None]
  - Application site vesicles [None]
  - Application site exfoliation [None]
  - Skin wrinkling [None]
  - Drug administered at inappropriate site [None]
  - Incorrect drug administration duration [None]
